FAERS Safety Report 21929965 (Version 1)
Quarter: 2023Q1

REPORT INFORMATION
  Report Type: Spontaneous
  Country: CZ (occurrence: CZ)
  Receive Date: 20230131
  Receipt Date: 20230131
  Transmission Date: 20230417
  Serious: Yes (Other)
  Sender: FDA-Public Use
  Company Number: CZ-STERISCIENCE B.V.-2023-ST-000373

PATIENT
  Sex: Female
  Weight: 2.14 kg

DRUGS (21)
  1. PIPERACILLIN SODIUM\TAZOBACTAM SODIUM [Suspect]
     Active Substance: PIPERACILLIN SODIUM\TAZOBACTAM SODIUM
     Indication: Product used for unknown indication
     Dosage: UNK
     Route: 064
  2. MEROPENEM [Suspect]
     Active Substance: MEROPENEM
     Indication: Product used for unknown indication
     Dosage: UNK
     Route: 064
  3. NOREPINEPHRINE [Suspect]
     Active Substance: NOREPINEPHRINE
     Indication: Product used for unknown indication
     Dosage: UNK
     Route: 064
  4. AMPICILLIN [Suspect]
     Active Substance: AMPICILLIN
     Indication: Product used for unknown indication
     Dosage: UNK
     Route: 064
  5. AMPICILLIN SODIUM\SULBACTAM SODIUM [Suspect]
     Active Substance: AMPICILLIN SODIUM\SULBACTAM SODIUM
     Indication: Product used for unknown indication
     Dosage: UNK
     Route: 064
  6. BETAMETHASONE [Suspect]
     Active Substance: BETAMETHASONE
     Indication: Product used for unknown indication
     Dosage: UNK
     Route: 064
  7. CHOLECALCIFEROL [Suspect]
     Active Substance: CHOLECALCIFEROL
     Indication: Product used for unknown indication
     Dosage: THE PATIENT MOTHER^S DOSE WAS 1500 INTERNATIONAL UNIT, QD
     Route: 064
  8. DESMOPRESSIN [Suspect]
     Active Substance: DESMOPRESSIN
     Indication: Product used for unknown indication
     Dosage: THE PATIENT MOTHER^S DOSE WAS 60 MICROGRAM, QD
     Route: 064
  9. DESMOPRESSIN [Suspect]
     Active Substance: DESMOPRESSIN
     Dosage: THE PATIENT MOTHER^S DOSE WAS STABILIZED TO 90 MICROGRAM, QD
     Route: 064
  10. DOPAMINE [Suspect]
     Active Substance: DOPAMINE HYDROCHLORIDE
     Indication: Product used for unknown indication
     Dosage: UNK
     Route: 064
  11. HYDROCORTISONE [Suspect]
     Active Substance: HYDROCORTISONE
     Indication: Product used for unknown indication
     Dosage: THE PATIENT MOTHER^S DOSE WAS 100 MILLIGRAM, BID
     Route: 064
  12. HYDROCORTISONE [Suspect]
     Active Substance: HYDROCORTISONE
     Dosage: THE PATIENT MOTHER^S DOSE WAS GRADUALLY DECREASED TO 50 MILLIGRAM, QD
     Route: 064
  13. HYDROCORTISONE [Suspect]
     Active Substance: HYDROCORTISONE
     Dosage: THE PATIENT MOTHER^S DOSE WAS 30 MILLIGRAM, QD IN 2 DIVIDED DOSES
     Route: 064
  14. HYDROCORTISONE [Suspect]
     Active Substance: HYDROCORTISONE
     Dosage: THE PATIENT MOTHER^S DOSE WAS IN CASE OF INFECTION INCREASED TO 200 MILLIGRAM, QD
     Route: 064
  15. LEVOTHYROXINE SODIUM [Suspect]
     Active Substance: LEVOTHYROXINE SODIUM
     Indication: Product used for unknown indication
     Dosage: THE PATIENT MOTHER^S DOSE WAS 75 MICROGRAM FOR 8 DAYS
     Route: 064
  16. LEVOTHYROXINE SODIUM [Suspect]
     Active Substance: LEVOTHYROXINE SODIUM
     Dosage: THE PATIENT MOTHER^S DOSE WAS 100 MICROGRAM FOR 5 DAYS
     Route: 064
  17. LEVOTHYROXINE SODIUM [Suspect]
     Active Substance: LEVOTHYROXINE SODIUM
     Dosage: THE PATIENT MOTHER^S DOSE WAS 125 MICROGRAM FOR 49 DAYS
     Route: 064
  18. LEVOTHYROXINE SODIUM [Suspect]
     Active Substance: LEVOTHYROXINE SODIUM
     Dosage: THE PATIENT MOTHER^S DOSE WAS 125 MICROGRAM 5 DAYS PER WEEK
     Route: 064
  19. LEVOTHYROXINE SODIUM [Suspect]
     Active Substance: LEVOTHYROXINE SODIUM
     Dosage: THE PATIENT MOTHER^S DOSE WAS 137 MICROGRAM PER 3 DAYS FOR 39 DAYS
     Route: 064
  20. NIFURATEL [Suspect]
     Active Substance: NIFURATEL
     Indication: Product used for unknown indication
     Dosage: UNK
     Route: 064
  21. UNSPECIFIED INGREDIENT [Suspect]
     Active Substance: UNSPECIFIED INGREDIENT
     Indication: Product used for unknown indication
     Dosage: UNK

REACTIONS (3)
  - Premature baby [Unknown]
  - Low birth weight baby [Unknown]
  - Foetal exposure during pregnancy [Unknown]
